FAERS Safety Report 20905966 (Version 2)
Quarter: 2022Q2

REPORT INFORMATION
  Report Type: Spontaneous
  Country: US (occurrence: US)
  Receive Date: 20220602
  Receipt Date: 20220610
  Transmission Date: 20220721
  Serious: Yes (Hospitalization)
  Sender: FDA-Public Use
  Company Number: US-UNITED THERAPEUTICS-UNT-2022-010790

PATIENT
  Sex: Female

DRUGS (2)
  1. REMODULIN [Suspect]
     Active Substance: TREPROSTINIL
     Indication: Pulmonary arterial hypertension
     Dosage: UNK, CONTINUING
     Route: 058
     Dates: start: 20200330
  2. REMODULIN [Suspect]
     Active Substance: TREPROSTINIL
     Dosage: 0.0452 ?G/KG, CONTINUING
     Route: 058

REACTIONS (6)
  - Infusion site reaction [Unknown]
  - Gait disturbance [Unknown]
  - Infusion site pain [Unknown]
  - Infusion site induration [Unknown]
  - Infusion site erythema [Unknown]
  - Headache [Unknown]
